FAERS Safety Report 4468234-8 (Version None)
Quarter: 2004Q4

REPORT INFORMATION
  Report Type: 
  Country: None (occurrence: None)
  Receive Date: 20041007
  Receipt Date: 20040812
  Transmission Date: 20050328
  Serious: Yes (Hospitalization)
  Sender: FDA-Public Use
  Company Number: DE-ABBOTT-04P-062-0270869-00

PATIENT
  Sex: Male
  Weight: 65 kg

DRUGS (2)
  1. AKINETON RETARD [Suspect]
     Indication: SUICIDE ATTEMPT
     Route: 048
     Dates: start: 20040812, end: 20040812
  2. ETHANOL [Suspect]
     Indication: SUICIDE ATTEMPT
     Dosage: 20 BOTTLES
     Route: 048
     Dates: start: 20040812, end: 20040812

REACTIONS (3)
  - ALCOHOL POISONING [None]
  - OVERDOSE [None]
  - SUICIDE ATTEMPT [None]
